FAERS Safety Report 6529952-0 (Version None)
Quarter: 2010Q1

REPORT INFORMATION
  Report Type: 
  Country: None (occurrence: None)
  Receive Date: 20100107
  Receipt Date: 20091228
  Transmission Date: 20100710
  Serious: Yes (Hospitalization)
  Sender: FDA-Public Use
  Company Number: KR-JNJFOC-20100100073

PATIENT
  Age: 60 Year
  Sex: Male

DRUGS (5)
  1. INFLIXIMAB [Suspect]
     Route: 042
  2. INFLIXIMAB [Suspect]
     Route: 042
  3. INFLIXIMAB [Suspect]
     Indication: BEHCET'S SYNDROME
     Route: 042
  4. RIFAMPICIN [Concomitant]
     Indication: PREMEDICATION
     Dosage: FOR 1 MONTH
  5. ISONIAZID [Concomitant]
     Indication: PREMEDICATION
     Dosage: STOPPED AFTER 2 MONTHS

REACTIONS (1)
  - DISSEMINATED TUBERCULOSIS [None]
